FAERS Safety Report 10489579 (Version 2)
Quarter: 2014Q4

REPORT INFORMATION
  Report Type: Spontaneous
  Country: DE (occurrence: None)
  Receive Date: 20140930
  Receipt Date: 20141008
  Transmission Date: 20150528
  Serious: Yes (Hospitalization)
  Sender: FDA-Public Use
  Company Number: DE-017141

PATIENT
  Age: 56 Year

DRUGS (4)
  1. LAXANS [Concomitant]
  2. PICOPREP [Suspect]
     Active Substance: CITRIC ACID MONOHYDRATE\MAGNESIUM OXIDE\SODIUM PICOSULFATE
     Indication: BOWEL PREPARATION
     Dosage: UNKNOWN
  3. UNACID [Suspect]
     Active Substance: AMPICILLIN SODIUM\SULBACTAM SODIUM
     Indication: PNEUMONIA
     Route: 042
     Dates: start: 20140719
  4. ACICLOVIR [Suspect]
     Active Substance: ACYCLOVIR
     Indication: PRODUCT USED FOR UNKNOWN INDICATION

REACTIONS (11)
  - Inappropriate antidiuretic hormone secretion [None]
  - Hyponatraemia [None]
  - Seizure [None]
  - Drug eruption [None]
  - Pneumonia [None]
  - Brain oedema [None]
  - Peripheral swelling [None]
  - Post procedural complication [None]
  - Rash maculo-papular [None]
  - Malaise [None]
  - Liver function test abnormal [None]
